FAERS Safety Report 12293838 (Version 1)
Quarter: 2016Q2

REPORT INFORMATION
  Report Type: Spontaneous
  Country: US (occurrence: US)
  Receive Date: 20160422
  Receipt Date: 20160422
  Transmission Date: 20160815
  Serious: Yes (Other)
  Sender: FDA-Public Use
  Company Number: US-AMGEN-USASP2016049186

PATIENT

DRUGS (1)
  1. PROLIA [Suspect]
     Active Substance: DENOSUMAB
     Indication: PRODUCT USED FOR UNKNOWN INDICATION
     Dosage: UNK
     Route: 065

REACTIONS (9)
  - Arthralgia [Unknown]
  - Muscle twitching [Unknown]
  - Adverse event [Unknown]
  - Pain in extremity [Unknown]
  - Hypersensitivity [Unknown]
  - Dyspnoea [Unknown]
  - Bone pain [Unknown]
  - Muscle spasms [Unknown]
  - Myalgia [Unknown]
